FAERS Safety Report 4323669-9 (Version None)
Quarter: 2004Q1

REPORT INFORMATION
  Report Type: 
  Country: None (occurrence: None)
  Receive Date: 20040323
  Receipt Date: 20040316
  Transmission Date: 20041129
  Serious: Yes (Hospitalization, Disabling)
  Sender: FDA-Public Use
  Company Number: CIP04000539

PATIENT
  Age: 50 Year
  Sex: Male

DRUGS (1)
  1. MACROBID [Suspect]
     Indication: PROSTATITIS
     Dosage: 100 MG DAILY, ORAL
     Route: 048
     Dates: start: 20030101, end: 20040101

REACTIONS (10)
  - ASTHENIA [None]
  - ATRIAL FIBRILLATION [None]
  - CONTUSION [None]
  - CREPITATIONS [None]
  - DEPRESSED LEVEL OF CONSCIOUSNESS [None]
  - DYSPNOEA [None]
  - INTERSTITIAL LUNG DISEASE [None]
  - PULMONARY FIBROSIS [None]
  - PYREXIA [None]
  - SYNCOPE [None]
